FAERS Safety Report 7511522-9 (Version None)
Quarter: 2011Q2

REPORT INFORMATION
  Report Type: 
  Country: None (occurrence: None)
  Receive Date: 20110531
  Receipt Date: 20110527
  Transmission Date: 20111010
  Serious: Yes (Death)
  Sender: FDA-Public Use
  Company Number: JM-B.I. PHARMACEUTICALS,INC./RIDGEFIELD-2011-CN-00678CN

PATIENT
  Age: 89 Year
  Sex: Male

DRUGS (8)
  1. SPIRIVA [Suspect]
     Indication: CHRONIC OBSTRUCTIVE PULMONARY DISEASE
     Dosage: 18 MCG
     Dates: start: 20060101
  2. VENTOLIN [Concomitant]
     Route: 055
  3. WARFARIN SODIUM [Concomitant]
  4. SERETIDE [Concomitant]
  5. RAMIPRIL [Concomitant]
  6. RANITIDINE [Concomitant]
     Dosage: TWICE A DAY
  7. FUROSEMIDE [Concomitant]
  8. NITROGLYCERIN 3 [Concomitant]
     Dosage: AS NEEDED

REACTIONS (1)
  - SUDDEN DEATH [None]
